FAERS Safety Report 15150230 (Version 1)
Quarter: 2018Q3

REPORT INFORMATION
  Report Type: Spontaneous
  Country: DE (occurrence: DE)
  Receive Date: 20180716
  Receipt Date: 20180716
  Transmission Date: 20181010
  Serious: Yes (Hospitalization, Other)
  Sender: FDA-Public Use
  Company Number: DE-US WORLDMEDS, LLC-STA_00017292

PATIENT
  Age: 69 Year
  Sex: Female
  Weight: 52 kg

DRUGS (6)
  1. EXELON 4,5MG [Concomitant]
     Indication: DEMENTIA
     Route: 048
  2. COMTESS 200MG [Concomitant]
     Indication: PARKINSON^S DISEASE
     Route: 048
  3. APOMORPHINE HYDROCHLORIDE [Suspect]
     Active Substance: APOMORPHINE HYDROCHLORIDE
     Indication: PARKINSON^S DISEASE
     Route: 058
     Dates: start: 201107
  4. MOTILIUM 10MG [Concomitant]
     Indication: NAUSEA
     Route: 048
  5. MADOPAR LT [Concomitant]
     Active Substance: BENSERAZIDE HYDROCHLORIDE\LEVODOPA
     Indication: PARKINSON^S DISEASE
     Route: 048
  6. NACOM 200MG [Concomitant]
     Indication: PARKINSON^S DISEASE
     Route: 048

REACTIONS (3)
  - Injection site nodule [Recovering/Resolving]
  - Hallucination, visual [Not Recovered/Not Resolved]
  - Memory impairment [Not Recovered/Not Resolved]

NARRATIVE: CASE EVENT DATE: 201107
